FAERS Safety Report 9179007 (Version 2)
Quarter: 2013Q2

REPORT INFORMATION
  Report Type: Spontaneous
  Country: US (occurrence: US)
  Receive Date: 20130321
  Receipt Date: 20130423
  Transmission Date: 20140414
  Serious: Yes (Other)
  Sender: FDA-Public Use
  Company Number: US-BAXTER-2013BAX007579

PATIENT
  Age: 61 Year
  Sex: Female
  Weight: 61.02 kg

DRUGS (4)
  1. GAMMAGARD S/D [Suspect]
     Indication: HYPOGAMMAGLOBULINAEMIA
     Route: 042
     Dates: start: 20120824
  2. GAMMAGARD S/D [Suspect]
     Route: 042
     Dates: start: 20130124
  3. FLUOXETINE [Concomitant]
     Indication: DEPRESSION
     Route: 048
  4. CYANOCOBALAMIN [Concomitant]
     Indication: ANAEMIA
     Route: 058

REACTIONS (2)
  - Chills [Recovered/Resolved]
  - Oxygen saturation decreased [Recovered/Resolved]
